FAERS Safety Report 6206209-9 (Version None)
Quarter: 2009Q2

REPORT INFORMATION
  Report Type: 
  Country: None (occurrence: None)
  Receive Date: 20090528
  Receipt Date: 20081027
  Transmission Date: 20091009
  Serious: No
  Sender: FDA-Public Use
  Company Number: US-KINGPHARMUSA00001-K200801238

PATIENT
  Sex: Female

DRUGS (1)
  1. AVINZA [Suspect]
     Indication: PAIN

REACTIONS (3)
  - DIZZINESS [None]
  - DRUG DIVERSION [None]
  - DRUG INEFFECTIVE [None]
